FAERS Safety Report 13843077 (Version 3)
Quarter: 2017Q3

REPORT INFORMATION
  Report Type: Spontaneous
  Country: NZ (occurrence: NZ)
  Receive Date: 20170808
  Receipt Date: 20170915
  Transmission Date: 20171127
  Serious: No
  Sender: FDA-Public Use
  Company Number: NZ-GLAXOSMITHKLINE-NZ2017GSK122695

PATIENT
  Sex: Female

DRUGS (1)
  1. SCOPODERM/TRANSDERM-SCOP [Suspect]
     Active Substance: SCOPOLAMINE HYDROBROMIDE
     Indication: PRODUCT USED FOR UNKNOWN INDICATION
     Dosage: UNK
     Route: 062

REACTIONS (5)
  - Mydriasis [Recovered/Resolved]
  - Vision blurred [Recovered/Resolved]
  - Photophobia [Recovered/Resolved]
  - Palpitations [Unknown]
  - Occupational exposure to product [Unknown]

NARRATIVE: CASE EVENT DATE: 20141030
